FAERS Safety Report 7808876-2 (Version None)
Quarter: 2011Q4

REPORT INFORMATION
  Report Type: 
  Country: None (occurrence: None)
  Receive Date: 20111012
  Receipt Date: 20111003
  Transmission Date: 20120403
  Serious: Yes (Hospitalization)
  Sender: FDA-Public Use
  Company Number: IL-SANOFI-AVENTIS-2011SA044083

PATIENT
  Age: 68 Year
  Sex: Female
  Weight: 110 kg

DRUGS (9)
  1. WARFARIN SODIUM [Concomitant]
  2. ALDACTONE [Concomitant]
  3. FUROSEMIDE [Concomitant]
     Dates: start: 20110317
  4. GASTRO [Concomitant]
  5. MONONIT [Concomitant]
  6. DRONEDARONE HCL [Suspect]
     Indication: ATRIAL FIBRILLATION
     Route: 048
     Dates: start: 20110313
  7. FUROSEMIDE [Concomitant]
     Indication: HYPERTENSION
  8. ENALAPRIL MALEATE [Concomitant]
  9. SIMVASTATIN [Concomitant]

REACTIONS (1)
  - CARDIAC FAILURE [None]
